FAERS Safety Report 4988496-8 (Version None)
Quarter: 2006Q2

REPORT INFORMATION
  Report Type: 
  Country: None (occurrence: None)
  Receive Date: 20060502
  Receipt Date: 20060126
  Transmission Date: 20061013
  Serious: No
  Sender: FDA-Public Use
  Company Number: 8014378

PATIENT
  Age: 5 Year
  Sex: Female
  Weight: 19.5 kg

DRUGS (2)
  1. AMOXICILLIN [Suspect]
     Indication: SINUSITIS
     Dosage: 200MG TWICE PER DAY
     Route: 048
     Dates: start: 20060110
  2. DELSYM [Suspect]
     Indication: COUGH
     Route: 065
     Dates: start: 20060110

REACTIONS (2)
  - INSOMNIA [None]
  - PSYCHOMOTOR HYPERACTIVITY [None]
